FAERS Safety Report 6218932-0 (Version None)
Quarter: 2009Q2

REPORT INFORMATION
  Report Type: 
  Country: None (occurrence: None)
  Receive Date: 20090608
  Receipt Date: 20090528
  Transmission Date: 20091009
  Serious: Yes (Hospitalization)
  Sender: FDA-Public Use
  Company Number: GB-AMGEN-QUU341166

PATIENT
  Sex: Female

DRUGS (4)
  1. NEULASTA [Suspect]
     Indication: CHEMOTHERAPY
     Route: 058
     Dates: start: 20090324, end: 20090324
  2. FLUOROURACIL [Suspect]
     Route: 042
     Dates: start: 20090319
  3. ADRIAMYCIN RDF [Suspect]
     Route: 042
     Dates: start: 20090319
  4. CYCLOPHOSPHAMIDE [Suspect]
     Route: 042
     Dates: start: 20090319

REACTIONS (5)
  - BODY TEMPERATURE INCREASED [None]
  - FEBRILE NEUTROPENIA [None]
  - MALAISE [None]
  - NERVOUSNESS [None]
  - NEUTROPHIL COUNT DECREASED [None]
